FAERS Safety Report 18274591 (Version 2)
Quarter: 2020Q3

REPORT INFORMATION
  Report Type: Spontaneous
  Country: CN (occurrence: CN)
  Receive Date: 20200916
  Receipt Date: 20200918
  Transmission Date: 20201103
  Serious: Yes (Hospitalization)
  Sender: FDA-Public Use
  Company Number: CN-JNJFOC-20200907096

PATIENT
  Age: 33 Year
  Sex: Female
  Weight: 54 kg

DRUGS (10)
  1. RISPERDAL CONSTA [Suspect]
     Active Substance: RISPERIDONE
     Indication: DELUSIONAL DISORDER, UNSPECIFIED TYPE
     Route: 030
     Dates: start: 20200810
  2. RISPERDAL CONSTA [Suspect]
     Active Substance: RISPERIDONE
  3. INVEGA SUSTENNA [Suspect]
     Active Substance: PALIPERIDONE PALMITATE
     Indication: DELUSIONAL DISORDER, UNSPECIFIED TYPE
     Route: 030
     Dates: start: 20200820
  4. INVEGA SUSTENNA [Suspect]
     Active Substance: PALIPERIDONE PALMITATE
  5. OLANZAPINE. [Suspect]
     Active Substance: OLANZAPINE
     Indication: DELUSIONAL DISORDER, UNSPECIFIED TYPE
     Route: 048
     Dates: start: 20200805, end: 20200814
  6. INVEGA SUSTENNA [Suspect]
     Active Substance: PALIPERIDONE PALMITATE
     Route: 030
     Dates: start: 20200827
  7. RISPERDAL CONSTA [Suspect]
     Active Substance: RISPERIDONE
  8. ALPRAZOLAM. [Suspect]
     Active Substance: ALPRAZOLAM
     Indication: DELUSIONAL DISORDER, UNSPECIFIED TYPE
     Route: 048
     Dates: start: 20200812, end: 20200901
  9. RISPERDAL CONSTA [Suspect]
     Active Substance: RISPERIDONE
  10. RISPERDAL [Suspect]
     Active Substance: RISPERIDONE
     Indication: DELUSIONAL DISORDER, UNSPECIFIED TYPE
     Route: 048
     Dates: start: 20200818, end: 20200827

REACTIONS (4)
  - Blood prolactin increased [Recovering/Resolving]
  - Liver function test abnormal [Recovering/Resolving]
  - Extrapyramidal disorder [Recovering/Resolving]
  - Hyperuricaemia [Recovering/Resolving]

NARRATIVE: CASE EVENT DATE: 20200805
